FAERS Safety Report 11093986 (Version 1)
Quarter: 2015Q2

REPORT INFORMATION
  Report Type: Report from Study
  Country: US (occurrence: US)
  Receive Date: 20150506
  Receipt Date: 20150506
  Transmission Date: 20150821
  Serious: Yes (Hospitalization, Other)
  Sender: FDA-Public Use
  Company Number: US-JNJFOC-20150423342

PATIENT
  Sex: Male
  Weight: 112.95 kg

DRUGS (1)
  1. REMICADE [Suspect]
     Active Substance: INFLIXIMAB
     Indication: RHEUMATOID ARTHRITIS
     Route: 042
     Dates: end: 2015

REACTIONS (10)
  - Sepsis [Recovered/Resolved]
  - Chronic obstructive pulmonary disease [Unknown]
  - Arthropathy [Not Recovered/Not Resolved]
  - Pyrexia [Unknown]
  - Immune system disorder [Unknown]
  - Malaise [Unknown]
  - Prostate cancer [Unknown]
  - Urinary tract infection [Unknown]
  - Adverse event [Unknown]
  - Bladder cancer [Unknown]

NARRATIVE: CASE EVENT DATE: 2015
